FAERS Safety Report 8591819-4 (Version None)
Quarter: 2012Q3

REPORT INFORMATION
  Report Type: 
  Country: None (occurrence: None)
  Receive Date: 20120814
  Receipt Date: 20120810
  Transmission Date: 20120928
  Serious: Yes (Hospitalization, Other)
  Sender: FDA-Public Use
  Company Number: PHEH2009US03889

PATIENT
  Sex: Male
  Weight: 75.3 kg

DRUGS (67)
  1. CADUET [Concomitant]
  2. BENAZEPRIL HYDROCHLORIDE [Concomitant]
  3. ENTOCORT EC [Concomitant]
  4. BACTRIM [Concomitant]
  5. TRAZODONE HYDROCHLORIDE [Concomitant]
  6. VINCRISTINE + ADRIAMYCIN + DEXAMETHASONE [Concomitant]
  7. CYCLOSPORINE [Concomitant]
  8. NEURONTIN [Concomitant]
  9. TRIAMCINOLONE [Concomitant]
  10. CLARITIN [Concomitant]
  11. COUMADIN [Concomitant]
  12. MELPHALAN HYDROCHLORIDE [Concomitant]
  13. PROPOFOL [Concomitant]
  14. PREDNISONE TAB [Concomitant]
  15. MYCOPHENOLIC ACID [Concomitant]
  16. METOCLOPRAMIDE [Concomitant]
  17. PANTOPRAZOLE [Concomitant]
  18. FLAGYL [Concomitant]
  19. MECLIZINE [Concomitant]
  20. CEFAZOLIN [Concomitant]
  21. ZOMETA [Suspect]
  22. IMODIUM A-D [Concomitant]
  23. FENTANYL [Concomitant]
  24. HYDROMORPHONE HYDROCHLORIDE [Concomitant]
  25. VALCYTE [Concomitant]
  26. PENICILLIN VK [Concomitant]
  27. NPH INSULIN [Concomitant]
  28. ZITHROMAX [Concomitant]
  29. ERGOCALCIFEROL [Concomitant]
  30. LORAZEPAM [Concomitant]
  31. VALTREX [Concomitant]
  32. MAGNESIUM [Concomitant]
  33. REGLAN [Concomitant]
  34. TEMAZEPAM [Concomitant]
  35. TACROLIMUS [Concomitant]
  36. ONDANSETRON [Concomitant]
  37. ARMODAFINIL [Concomitant]
  38. MS CONTIN [Concomitant]
  39. MEDROL [Concomitant]
  40. AVALIDE [Concomitant]
  41. ANTIVERT [Concomitant]
  42. AMBIEN [Concomitant]
  43. VELCADE [Concomitant]
  44. PERCOCET [Concomitant]
  45. FLEXERIL [Concomitant]
  46. DESFLURANE [Concomitant]
  47. PROTONIX [Concomitant]
  48. COMPAZINE [Concomitant]
  49. SENNA [Concomitant]
  50. PROMETHAZINE [Concomitant]
  51. ROCURONIUM BROMIDE [Concomitant]
  52. AREDIA [Suspect]
  53. COREG [Concomitant]
  54. CYMBALTA [Concomitant]
  55. MORPHINE SULFATE [Concomitant]
  56. VALIUM [Concomitant]
  57. LANTUS [Concomitant]
  58. VALACICLOVIR [Concomitant]
  59. REVLIMID [Concomitant]
  60. THALIDOMIDE [Concomitant]
  61. HYDROCODONE BITARTRATE [Concomitant]
  62. NALOXONE [Concomitant]
  63. NOVOLOG [Concomitant]
  64. SULFAMETHOXAZOLE AND TRIMETHOPRIM [Concomitant]
  65. ENTOCORT EC [Concomitant]
  66. PREVACID [Concomitant]
  67. LIDOCAINE [Concomitant]

REACTIONS (94)
  - IMPAIRED HEALING [None]
  - CANDIDIASIS [None]
  - PNEUMONIA [None]
  - FOREIGN BODY REACTION [None]
  - DUODENITIS [None]
  - HAEMATEMESIS [None]
  - DRY EYE [None]
  - DYSPNOEA [None]
  - CHEST PAIN [None]
  - TUBERCULOSIS [None]
  - LIMB DISCOMFORT [None]
  - ANAEMIA [None]
  - HYPOPHOSPHATAEMIA [None]
  - DEEP VEIN THROMBOSIS [None]
  - CYTOMEGALOVIRUS INFECTION [None]
  - OSTEOPOROSIS [None]
  - DIARRHOEA [None]
  - ABDOMINAL DISCOMFORT [None]
  - NAUSEA [None]
  - SWELLING FACE [None]
  - CATARACT [None]
  - GENERAL PHYSICAL HEALTH DETERIORATION [None]
  - PAIN [None]
  - SLEEP APNOEA SYNDROME [None]
  - HYPOXIA [None]
  - CARDIOMYOPATHY [None]
  - GASTRITIS [None]
  - HYPERHIDROSIS [None]
  - BONE MARROW DISORDER [None]
  - HYPERGLYCAEMIA [None]
  - ATELECTASIS [None]
  - OSTEORADIONECROSIS [None]
  - OSTEOLYSIS [None]
  - METASTASES TO BONE MARROW [None]
  - DIABETES MELLITUS [None]
  - GASTROOESOPHAGEAL REFLUX DISEASE [None]
  - IMPAIRED GASTRIC EMPTYING [None]
  - RENAL DISORDER [None]
  - HEADACHE [None]
  - INSOMNIA [None]
  - PAIN IN EXTREMITY [None]
  - BURSITIS [None]
  - POLLAKIURIA [None]
  - ERUCTATION [None]
  - LOCALISED INFECTION [None]
  - DIABETIC KETOACIDOSIS [None]
  - DECREASED INTEREST [None]
  - PAIN IN JAW [None]
  - HYPERTENSION [None]
  - FATIGUE [None]
  - NEUROPATHY PERIPHERAL [None]
  - EXTRASYSTOLES [None]
  - LEFT VENTRICULAR DYSFUNCTION [None]
  - EJECTION FRACTION [None]
  - BRONCHITIS [None]
  - DERMATITIS CONTACT [None]
  - DIZZINESS [None]
  - HYPERCALCAEMIA [None]
  - CARDIAC FAILURE CONGESTIVE [None]
  - OSTEONECROSIS OF JAW [None]
  - ANXIETY [None]
  - NEOPLASM MALIGNANT [None]
  - INFLAMMATION [None]
  - PYREXIA [None]
  - INTERVERTEBRAL DISC DEGENERATION [None]
  - GASTRIC POLYPS [None]
  - DYSPHAGIA [None]
  - ODYNOPHAGIA [None]
  - DYSPHONIA [None]
  - PARAESTHESIA [None]
  - ABDOMINAL DISTENSION [None]
  - DYSPEPSIA [None]
  - PURULENCE [None]
  - BACK PAIN [None]
  - BONE DISORDER [None]
  - CYST [None]
  - HYPERLIPIDAEMIA [None]
  - RASH [None]
  - BLOOD MAGNESIUM DECREASED [None]
  - THROMBOSIS [None]
  - RENAL FAILURE ACUTE [None]
  - DEHYDRATION [None]
  - LEFT VENTRICULAR HYPERTROPHY [None]
  - ARTHRALGIA [None]
  - OSTEONECROSIS [None]
  - NEPHROLITHIASIS [None]
  - GRANULOMA [None]
  - GRAFT VERSUS HOST DISEASE [None]
  - BLOOD SODIUM DECREASED [None]
  - OCULAR HYPERAEMIA [None]
  - OROPHARYNGEAL PAIN [None]
  - DYSURIA [None]
  - BLOOD COUNT ABNORMAL [None]
  - ASTHENIA [None]
